FAERS Safety Report 9263109 (Version 2)
Quarter: 2013Q2

REPORT INFORMATION
  Report Type: Report from Study
  Country: US (occurrence: US)
  Receive Date: 20130430
  Receipt Date: 20130522
  Transmission Date: 20140414
  Serious: No
  Sender: FDA-Public Use
  Company Number: US-VERTEX PHARMACEUTICALS INC-2013-005477

PATIENT
  Age: 48 Year
  Sex: Female
  Weight: 81 kg

DRUGS (7)
  1. VX-950 (TELAPREVIR) [Suspect]
     Indication: HEPATITIS C
     Dosage: 750 MG, TID
     Route: 048
     Dates: start: 20130402
  2. RIBAPAK [Suspect]
     Indication: HEPATITIS C
     Dosage: 600 MG, BID
     Route: 048
     Dates: start: 20130321
  3. PEGASYS [Suspect]
     Indication: HEPATITIS C
     Dosage: 180 ?G, QW
     Route: 058
     Dates: start: 20130402
  4. ZOFRAN                             /00955301/ [Concomitant]
     Dosage: 8 MG, PRN
     Route: 048
     Dates: start: 20130417
  5. PAXIL [Concomitant]
     Dosage: 10 MG, UNK
     Route: 048
  6. XANAX [Concomitant]
     Dosage: UNK, PRN
  7. NOVOLOG [Concomitant]

REACTIONS (3)
  - Oral herpes [Unknown]
  - Rash pruritic [Recovered/Resolved]
  - Rash macular [Unknown]
